FAERS Safety Report 9091003 (Version 1)
Quarter: 2013Q1

REPORT INFORMATION
  Report Type: Report from Study
  Country: US (occurrence: US)
  Receive Date: 20130201
  Receipt Date: 20130201
  Transmission Date: 20140127
  Serious: No
  Sender: FDA-Public Use
  Company Number: US-ABBOTT-12P-163-1029452-00

PATIENT
  Age: 49 Year
  Sex: Female

DRUGS (3)
  1. HUMIRA [Suspect]
     Indication: RHEUMATOID ARTHRITIS
     Dates: start: 20120905
  2. METHOTREXATE [Concomitant]
     Indication: RHEUMATOID ARTHRITIS
     Dosage: 8 TABLETS WEEKLY
  3. METHOTREXATE [Concomitant]
     Dosage: 7 TABLETS WEEKLY

REACTIONS (5)
  - Nausea [Not Recovered/Not Resolved]
  - Drug dose omission [Not Recovered/Not Resolved]
  - Incorrect storage of drug [Not Recovered/Not Resolved]
  - Incorrect storage of drug [Not Recovered/Not Resolved]
  - Incorrect storage of drug [Not Recovered/Not Resolved]
